FAERS Safety Report 6317265-1 (Version None)
Quarter: 2009Q3

REPORT INFORMATION
  Report Type: 
  Country: None (occurrence: None)
  Receive Date: 20090819
  Receipt Date: 20090806
  Transmission Date: 20100115
  Serious: Yes (Hospitalization)
  Sender: FDA-Public Use
  Company Number: 2009AL001470

PATIENT
  Sex: Female

DRUGS (5)
  1. DIGOXIN [Suspect]
     Dosage: PO
     Route: 048
  2. SPIRONOLACTONE [Concomitant]
  3. COREG [Concomitant]
  4. LISINOPRIL [Concomitant]
  5. COUMADIN [Concomitant]

REACTIONS (17)
  - ABDOMINAL PAIN [None]
  - ACTIVITIES OF DAILY LIVING IMPAIRED [None]
  - ANHEDONIA [None]
  - BLOOD CALCIUM INCREASED [None]
  - CARDIAC FIBRILLATION [None]
  - CARDIOACTIVE DRUG LEVEL INCREASED [None]
  - ECONOMIC PROBLEM [None]
  - EMOTIONAL DISORDER [None]
  - HYPOMAGNESAEMIA [None]
  - INJURY [None]
  - INTERNATIONAL NORMALISED RATIO INCREASED [None]
  - LOSS OF EMPLOYMENT [None]
  - MULTIPLE INJURIES [None]
  - PAIN [None]
  - PROTHROMBIN TIME PROLONGED [None]
  - SOCIAL AVOIDANT BEHAVIOUR [None]
  - UNEVALUABLE EVENT [None]
